FAERS Safety Report 20911685 (Version 2)
Quarter: 2022Q2

REPORT INFORMATION
  Report Type: Spontaneous
  Country: GR (occurrence: None)
  Receive Date: 20220603
  Receipt Date: 20220606
  Transmission Date: 20220720
  Serious: Yes (Other)
  Sender: FDA-Public Use
  Company Number: GR-ROCHE-3109775

PATIENT
  Sex: Female

DRUGS (12)
  1. RITUXIMAB [Suspect]
     Active Substance: RITUXIMAB
     Indication: Diffuse large B-cell lymphoma
     Dosage: START DATE (14/MAR/2021) OF 1ST SYSTEMIC TREATMENT, END DATE OF 1ST SYSTEMIC TREATMENT (07/APR/2021)
     Route: 065
     Dates: start: 20210319, end: 20210907
  2. POLIVY [Suspect]
     Active Substance: POLATUZUMAB VEDOTIN-PIIQ
     Indication: Diffuse large B-cell lymphoma
     Route: 065
     Dates: start: 20210706, end: 20210920
  3. DOXORUBICIN [Suspect]
     Active Substance: DOXORUBICIN
     Indication: Diffuse large B-cell lymphoma
     Dosage: START DATE (14/MAR/2021) OF 1ST SYSTEMIC TREATMENT, END DATE OF 1ST SYSTEMIC TREATMENT (07/APR/2021)
     Route: 065
     Dates: start: 20210319, end: 20210907
  4. VINCRISTINE [Suspect]
     Active Substance: VINCRISTINE
     Indication: Diffuse large B-cell lymphoma
     Dosage: START DATE (14/MAR/2021) OF 1ST SYSTEMIC TREATMENT, END DATE OF 1ST SYSTEMIC TREATMENT (07/APR/2021)
     Route: 065
     Dates: start: 20210319, end: 20210907
  5. PREDNISONE [Suspect]
     Active Substance: PREDNISONE
     Indication: Diffuse large B-cell lymphoma
     Dosage: START DATE (14/MAR/2021) OF 1ST SYSTEMIC TREATMENT, END DATE OF 1ST SYSTEMIC TREATMENT (07/APR/2021)
     Route: 065
     Dates: start: 20210319, end: 20210907
  6. ETOPOSIDE [Suspect]
     Active Substance: ETOPOSIDE
     Indication: Diffuse large B-cell lymphoma
     Dosage: START DATE ON 11/APR/2021 OF 2ND SYSTEMIC TREATMENT, END DATE ON 08/JUN/2021 OF 2ND SYSTEMIC TREATME
     Route: 065
     Dates: start: 20210911
  7. METHYLPREDNISOLONE [Suspect]
     Active Substance: METHYLPREDNISOLONE
     Indication: Diffuse large B-cell lymphoma
     Dosage: START DATE ON 11/APR/2021 OF 2ND SYSTEMIC TREATMENT, END DATE ON 08/JUN/2021 OF 2ND SYSTEMIC TREATME
     Route: 065
  8. CYTARABINE [Suspect]
     Active Substance: CYTARABINE
     Indication: Diffuse large B-cell lymphoma
     Dosage: START DATE ON 11/APR/2021 OF 2ND SYSTEMIC TREATMENT, END DATE ON 08/JUN/2021 OF 2ND SYSTEMIC TREATME
     Route: 065
  9. CISPLATIN [Suspect]
     Active Substance: CISPLATIN
     Indication: Diffuse large B-cell lymphoma
     Dosage: START DATE ON 11/APR/2021 OF 2ND SYSTEMIC TREATMENT, END DATE ON 08/JUN/2021 OF 2ND SYSTEMIC TREATME
     Route: 065
     Dates: start: 20210911
  10. CYCLOPHOSPHAMIDE [Suspect]
     Active Substance: CYCLOPHOSPHAMIDE
     Indication: Diffuse large B-cell lymphoma
     Dosage: START DATE (14/MAR/2021) OF 1ST SYSTEMIC TREATMENT, END DATE OF 1ST SYSTEMIC TREATMENT (07/APR/2021)
     Route: 065
     Dates: start: 20210319, end: 20210907
  11. BENDAMUSTINE [Suspect]
     Active Substance: BENDAMUSTINE
     Indication: Diffuse large B-cell lymphoma
     Dosage: END DATE ON 24/SEP/2021 OF 3RD SYSTEMIC TREATMENT.
     Route: 065
     Dates: start: 20210706, end: 20210929
  12. SELINEXOR [Suspect]
     Active Substance: SELINEXOR
     Indication: Diffuse large B-cell lymphoma
     Route: 065
     Dates: start: 20220105, end: 20220525

REACTIONS (1)
  - Disease progression [Unknown]
